FAERS Safety Report 6407522-2 (Version None)
Quarter: 2009Q4

REPORT INFORMATION
  Report Type: 
  Country: None (occurrence: None)
  Receive Date: 20091020
  Receipt Date: 20091007
  Transmission Date: 20100525
  Serious: Yes (Hospitalization, Other)
  Sender: FDA-Public Use
  Company Number: US-ELI_LILLY_AND_COMPANY-US200910002203

PATIENT
  Age: 40 Year
  Sex: Female

DRUGS (2)
  1. OLANZAPINE [Suspect]
     Dosage: 20 MG, DAILY (1/D)
  2. OLANZAPINE [Suspect]
     Dosage: 15 MG, DAILY (1/D)

REACTIONS (5)
  - DRUG EXPOSURE DURING PREGNANCY [None]
  - GESTATIONAL DIABETES [None]
  - PRE-ECLAMPSIA [None]
  - SEDATION [None]
  - WEIGHT INCREASED [None]
